FAERS Safety Report 23925763 (Version 1)
Quarter: 2024Q2

REPORT INFORMATION
  Report Type: Spontaneous
  Country: US (occurrence: None)
  Receive Date: 20240530
  Receipt Date: 20240530
  Transmission Date: 20240716
  Serious: Yes (Death)
  Sender: FDA-Public Use
  Company Number: None

PATIENT
  Age: 84 Year
  Sex: Male

DRUGS (10)
  1. REPATHA [Suspect]
     Active Substance: EVOLOCUMAB
     Indication: Dyslipidaemia
     Dosage: OTHER FREQUENCY : EVERY TWO WEEKS;?
     Route: 058
     Dates: start: 20221206, end: 20240511
  2. REPATHA [Concomitant]
     Active Substance: EVOLOCUMAB
     Dates: start: 20221206, end: 20240511
  3. AMLODIPINE [Concomitant]
     Active Substance: AMLODIPINE BESYLATE
     Dates: start: 20220919, end: 20221218
  4. BRIMONIDINE TARTRATE\TIMOLOL MALEATE [Concomitant]
     Active Substance: BRIMONIDINE TARTRATE\TIMOLOL MALEATE
     Dates: start: 20230106, end: 20230830
  5. DOCUSATE [Concomitant]
     Active Substance: DOCUSATE
     Dates: start: 20210629, end: 20220621
  6. ELIQUIS [Concomitant]
     Active Substance: APIXABAN
     Dates: start: 20240416, end: 20240511
  7. LATANOPROST [Concomitant]
     Active Substance: LATANOPROST
     Dates: start: 20230108, end: 20230526
  8. OMEPRAZOLE [Concomitant]
     Active Substance: DONEPEZIL HYDROCHLORIDE\OMEPRAZOLE\OMEPRAZOLE MAGNESIUM
     Dates: start: 20230412, end: 20230814
  9. TRAZODONE [Concomitant]
     Active Substance: TRAZODONE HYDROCHLORIDE
     Dates: start: 20230414, end: 20230529
  10. ZOLPIDEM [Concomitant]
     Active Substance: ZOLPIDEM TARTRATE
     Dates: start: 20221226, end: 20230125

REACTIONS (1)
  - Death [None]

NARRATIVE: CASE EVENT DATE: 20240511
